FAERS Safety Report 16808341 (Version 2)
Quarter: 2019Q3

REPORT INFORMATION
  Report Type: Spontaneous
  Country: US (occurrence: US)
  Receive Date: 20190916
  Receipt Date: 20190923
  Transmission Date: 20191005
  Serious: Yes (Hospitalization, Other)
  Sender: FDA-Public Use
  Company Number: US-AUROBINDO-AUR-APL-2019-058772

PATIENT
  Age: 28 Year
  Sex: Male

DRUGS (3)
  1. ALPRAZOLAM. [Suspect]
     Active Substance: ALPRAZOLAM
     Indication: PRODUCT USED FOR UNKNOWN INDICATION
     Dosage: UNK
     Route: 065
  2. BUPRENORPHINE. [Suspect]
     Active Substance: BUPRENORPHINE
     Indication: PRODUCT USED FOR UNKNOWN INDICATION
     Dosage: UNK
     Route: 065
  3. OXYCODONE [Suspect]
     Active Substance: OXYCODONE
     Indication: PRODUCT USED FOR UNKNOWN INDICATION
     Dosage: UNK
     Route: 065

REACTIONS (8)
  - Intentional product misuse [Recovered/Resolved]
  - Toxicity to various agents [Unknown]
  - Multiple organ dysfunction syndrome [Recovered/Resolved]
  - Troponin T increased [Recovered/Resolved]
  - Intentional overdose [Recovered/Resolved]
  - Unresponsive to stimuli [Recovered/Resolved]
  - Cyanosis [Recovered/Resolved]
  - Deafness neurosensory [Recovered/Resolved]
